FAERS Safety Report 4771197-9 (Version None)
Quarter: 2005Q3

REPORT INFORMATION
  Report Type: 
  Country: None (occurrence: None)
  Receive Date: 20050912
  Receipt Date: 20050615
  Transmission Date: 20060218
  Serious: Yes (Other)
  Sender: FDA-Public Use
  Company Number: 2004-00630

PATIENT
  Age: 73 Year
  Sex: Female
  Weight: 63.5 kg

DRUGS (8)
  1. VELCADE [Suspect]
     Indication: MULTIPLE MYELOMA
     Dosage: 2.20 MG, IV BOLUS; SEE IMAGE
     Route: 040
     Dates: start: 20040308, end: 20041008
  2. VELCADE [Suspect]
     Indication: MULTIPLE MYELOMA
     Dosage: 2.20 MG, IV BOLUS; SEE IMAGE
     Route: 040
     Dates: start: 20041025
  3. DECADRON [Concomitant]
  4. PAMIDRONATE DISODIUM [Concomitant]
  5. LEUKINE (SARAGRAMOTISM) [Concomitant]
  6. GLUCOPHAGE [Concomitant]
  7. ARANESP [Concomitant]
  8. ANZEMET (DOLASETRON MESILATE) [Concomitant]

REACTIONS (6)
  - ANAEMIA [None]
  - DIZZINESS [None]
  - HEADACHE [None]
  - LEUKOPENIA [None]
  - VISION BLURRED [None]
  - VITH NERVE PARALYSIS [None]
